FAERS Safety Report 6382290-1 (Version None)
Quarter: 2009Q3

REPORT INFORMATION
  Report Type: 
  Country: None (occurrence: None)
  Receive Date: 20090930
  Receipt Date: 20090924
  Transmission Date: 20100115
  Serious: Yes (Hospitalization)
  Sender: FDA-Public Use
  Company Number: GB-WYE-G04500509

PATIENT
  Age: 53 Year
  Sex: Male
  Weight: 75 kg

DRUGS (8)
  1. SIROLIMUS [Suspect]
     Indication: IMMUNOSUPPRESSION
     Dosage: 3MG, FREQUENCY UNSPECIFIED
     Route: 048
     Dates: start: 20090101, end: 20090901
  2. AZATHIOPRINE [Concomitant]
     Indication: IMMUNOSUPPRESSION
     Route: 048
  3. RANITIDINE [Concomitant]
     Indication: PROPHYLAXIS AGAINST GASTROINTESTINAL ULCER
     Route: 048
  4. LISINOPRIL [Concomitant]
  5. PRAVASTATIN [Concomitant]
     Route: 048
  6. PREDNISOLONE [Concomitant]
     Indication: IMMUNOSUPPRESSION
     Route: 048
  7. ASPIRIN [Concomitant]
  8. ARANESP [Concomitant]
     Dosage: DOSAGE UNSPECIFIED, 1 IN 1 WEEKS

REACTIONS (3)
  - FATIGUE [None]
  - INTERSTITIAL LUNG DISEASE [None]
  - WEIGHT DECREASED [None]
